FAERS Safety Report 6389896-4 (Version None)
Quarter: 2009Q4

REPORT INFORMATION
  Report Type: 
  Country: None (occurrence: None)
  Receive Date: 20091006
  Receipt Date: 20090303
  Transmission Date: 20100525
  Serious: No
  Sender: FDA-Public Use
  Company Number: US-BRISTOL-MYERS SQUIBB COMPANY-14529796

PATIENT
  Sex: Female

DRUGS (1)
  1. AVAPRO [Suspect]

REACTIONS (13)
  - ASTHENIA [None]
  - DEPRESSION [None]
  - DRY EYE [None]
  - EYE SWELLING [None]
  - HEADACHE [None]
  - LIP DRY [None]
  - MIGRAINE WITH AURA [None]
  - PRURITUS [None]
  - SLEEP DISORDER [None]
  - SPEECH DISORDER [None]
  - TRANSIENT ISCHAEMIC ATTACK [None]
  - TREMOR [None]
  - VERTIGO POSITIONAL [None]
